FAERS Safety Report 7609987-7 (Version None)
Quarter: 2011Q3

REPORT INFORMATION
  Report Type: 
  Country: None (occurrence: None)
  Receive Date: 20110714
  Receipt Date: 20110705
  Transmission Date: 20111222
  Serious: Yes (Hospitalization, Other)
  Sender: FDA-Public Use
  Company Number: US-RB-025649-11

PATIENT
  Age: 19 Year
  Sex: Male

DRUGS (5)
  1. SUBOXONE [Suspect]
     Dosage: SUBLINGUAL FILM
     Route: 060
     Dates: start: 20110301, end: 20110401
  2. SUBOXONE [Suspect]
     Indication: DRUG DEPENDENCE
     Dosage: SUBLINGUAL FILM
     Route: 060
     Dates: start: 20110401
  3. VICODIN [Suspect]
     Indication: PRODUCT USED FOR UNKNOWN INDICATION
     Dosage: DOSAGE INFORMATION UNKNOWN
     Route: 065
  4. SUBOXONE [Suspect]
     Dosage: SUBLINGUAL FILM
     Route: 060
     Dates: start: 20110101, end: 20110301
  5. PERCOCET [Suspect]
     Indication: PRODUCT USED FOR UNKNOWN INDICATION
     Dosage: DOSAGE INFORMATION UNKNOWN
     Route: 065

REACTIONS (6)
  - OVERDOSE [None]
  - EUPHORIC MOOD [None]
  - PAIN IN EXTREMITY [None]
  - LOSS OF CONSCIOUSNESS [None]
  - DRUG ABUSE [None]
  - HAND FRACTURE [None]
